FAERS Safety Report 15430107 (Version 2)
Quarter: 2018Q4

REPORT INFORMATION
  Report Type: Report from Study
  Country: US (occurrence: US)
  Receive Date: 20180926
  Receipt Date: 20181204
  Transmission Date: 20190204
  Serious: Yes (Hospitalization, Other)
  Sender: FDA-Public Use
  Company Number: US-ADAMAS PHARMA, LLC-2018ADA02280

PATIENT
  Age: 80 Year
  Sex: Female
  Weight: 33.56 kg

DRUGS (22)
  1. GOCOVRI [Suspect]
     Active Substance: AMANTADINE
     Dosage: 137 MG, 1X/DAY AT BEDTIME
     Route: 048
     Dates: start: 2018
  2. OXYBUTYNIN. [Concomitant]
     Active Substance: OXYBUTYNIN CHLORIDE
  3. SERTRALINE [Concomitant]
     Active Substance: SERTRALINE HYDROCHLORIDE
     Dosage: 50 MG, 1X/DAY
     Route: 048
  4. GOCOVRI [Suspect]
     Active Substance: AMANTADINE
     Indication: DYSKINESIA
     Dosage: 137 MG, 1X/DAY AT BEDTIME
     Route: 048
     Dates: start: 20180720, end: 20180726
  5. VIT D3/VIT C [Concomitant]
     Dosage: UNK, 1X/DAY
     Route: 048
  6. GOCOVRI [Suspect]
     Active Substance: AMANTADINE
     Dosage: 274 MG, 1X/DAY AT BEDTIME
     Route: 048
     Dates: start: 20180727, end: 2018
  7. GABAPENTIN. [Suspect]
     Active Substance: GABAPENTIN
     Dosage: 300 MG, 3X/DAY
     Dates: end: 2018
  8. CALCIUM [Concomitant]
     Active Substance: CALCIUM
  9. XOLAIR [Concomitant]
     Active Substance: OMALIZUMAB
  10. PROAIR HFA [Concomitant]
     Active Substance: ALBUTEROL SULFATE
     Dosage: 2 DOSAGE UNITS, 4X/DAY (EVERY 6 HOURS) AS NEEDED
     Route: 055
  11. VALACYCLOVIR [Concomitant]
     Active Substance: VALACYCLOVIR HYDROCHLORIDE
     Dosage: 500 MG, 3X/DAY
     Route: 048
  12. BOOST CALORIE SMART LIQ CHOC/MLT [Concomitant]
     Dosage: 3 DOSAGE UNITS (BOTTLES)/DAY
     Route: 048
  13. CYCLOSPORINE. [Concomitant]
     Active Substance: CYCLOSPORINE
  14. EYE LUBRICANT OPHTHALMIC OINTMENT [Concomitant]
     Dosage: UNK, 1X/DAY (TO LEFT EYE)
     Route: 047
  15. VOLTAREN [Concomitant]
     Active Substance: DICLOFENAC SODIUM
     Dosage: 2 G, 4X/DAY AS NEEDED
     Route: 061
  16. ZOFRAN [Concomitant]
     Active Substance: ONDANSETRON HYDROCHLORIDE
     Dosage: 8 MG, 3X/DAY (EVERY 8 HOURS) AS NEED
     Route: 048
  17. CARBIDOPA/LEVODOPA [Concomitant]
     Active Substance: CARBIDOPA\LEVODOPA
     Dosage: 1 DOSAGE UNITS, 3X/DAY
     Route: 048
  18. SODIUM BICAR [Concomitant]
  19. VIT B12/FA [Concomitant]
     Dosage: 500 ?G, 1X/DAY
     Route: 048
  20. MAGNESIUM [Concomitant]
     Active Substance: MAGNESIUM
  21. HYDROXYCHLOROQUINE [Concomitant]
     Active Substance: HYDROXYCHLOROQUINE
     Dosage: 200 MG, 1X/DAY
     Route: 048
  22. SULFASALAZINE. [Concomitant]
     Active Substance: SULFASALAZINE
     Dosage: 500 MG, 2X/DAY
     Route: 048

REACTIONS (14)
  - Agitation [Recovered/Resolved]
  - Fall [Unknown]
  - Gastrostomy [Unknown]
  - Encephalopathy [Unknown]
  - Gastrostomy tube site complication [Unknown]
  - Parkinson^s disease [Unknown]
  - Constipation [Unknown]
  - Hallucination, visual [Unknown]
  - Product dose omission [Recovered/Resolved]
  - Mental status changes [Unknown]
  - Malnutrition [Unknown]
  - Ileus [Unknown]
  - Confusional state [Unknown]
  - Head injury [Unknown]

NARRATIVE: CASE EVENT DATE: 2018
